FAERS Safety Report 17160099 (Version 1)
Quarter: 2019Q4

REPORT INFORMATION
  Report Type: Spontaneous
  Country: US (occurrence: US)
  Receive Date: 20191216
  Receipt Date: 20191216
  Transmission Date: 20200122
  Serious: No
  Sender: FDA-Public Use
  Company Number: US-SA-2019SA347407

PATIENT
  Age: 35 Year
  Sex: Male

DRUGS (1)
  1. DUPIXENT [Suspect]
     Active Substance: DUPILUMAB
     Indication: ASTHMA

REACTIONS (5)
  - Rhinorrhoea [Unknown]
  - Anosmia [Unknown]
  - Nasal polyps [Unknown]
  - Cough [Unknown]
  - Unevaluable event [Unknown]
